FAERS Safety Report 17265689 (Version 5)
Quarter: 2020Q4

REPORT INFORMATION
  Report Type: Spontaneous
  Country: BR (occurrence: BR)
  Receive Date: 20200114
  Receipt Date: 20201105
  Transmission Date: 20210113
  Serious: Yes (Other)
  Sender: FDA-Public Use
  Company Number: BR-AMGEN-BRASP2019202959

PATIENT
  Age: 64 Year
  Sex: Female
  Weight: 61 kg

DRUGS (8)
  1. FOLIC ACID GENERIC [Concomitant]
     Indication: RHEUMATOID ARTHRITIS
     Dosage: USES ON SATURDAYS AND SUNDAYS
  2. LEFLUNOMIDE. [Concomitant]
     Active Substance: LEFLUNOMIDE
     Dosage: UNK
     Dates: start: 201905
  3. ENTECAVIR. [Concomitant]
     Active Substance: ENTECAVIR
     Dosage: UNK
     Dates: start: 201905
  4. METHOTREXATE. [Concomitant]
     Active Substance: METHOTREXATE
     Indication: RHEUMATOID ARTHRITIS
     Dosage: USES ON FRIDAYS, BEFORE 10 TABLETS, DECREASED FOR 8 AND GONE FOR 6 WHEN SHE STARTED TO USE ENBREL
  5. ENBREL [Suspect]
     Active Substance: ETANERCEPT
     Indication: RHEUMATOID ARTHRITIS
     Dosage: 50 MILLIGRAM, QWK
     Route: 065
     Dates: start: 201905, end: 20200101
  6. CALCIUM [Concomitant]
     Active Substance: CALCIUM
     Dosage: UNK
     Dates: start: 2014
  7. RISEDRONATE SODIUM. [Concomitant]
     Active Substance: RISEDRONATE SODIUM
     Indication: OSTEOARTHRITIS
     Dosage: UNK
     Dates: start: 2014
  8. PREDNISONE. [Concomitant]
     Active Substance: PREDNISONE
     Indication: RHEUMATOID ARTHRITIS
     Dosage: UNK

REACTIONS (7)
  - Device delivery system issue [Recovered/Resolved]
  - Pain [Recovered/Resolved]
  - Gastric infection [Not Recovered/Not Resolved]
  - Drug dose omission by device [Recovered/Resolved]
  - Hepatitis B [Not Recovered/Not Resolved]
  - Tuberculosis [Recovered/Resolved]
  - Weight increased [Recovered/Resolved]

NARRATIVE: CASE EVENT DATE: 2019
